FAERS Safety Report 17843353 (Version 1)
Quarter: 2020Q2

REPORT INFORMATION
  Report Type: Spontaneous
  Country: SE (occurrence: SE)
  Receive Date: 20200530
  Receipt Date: 20200530
  Transmission Date: 20200714
  Serious: Yes (Life-Threatening, Hospitalization, Congenital Anomaly)
  Sender: FDA-Public Use
  Company Number: SE-ACCORD-183630

PATIENT
  Sex: Female

DRUGS (1)
  1. SERTRALINE [Suspect]
     Active Substance: SERTRALINE HYDROCHLORIDE
     Dosage: DOSE: 1, 200 MG / DAY UP TO WEEK 15/16, THEN TAPERING TO 100 MG DAILY UNTIL PARTURITION
     Route: 064

REACTIONS (2)
  - Shone complex [Recovered/Resolved with Sequelae]
  - Foetal exposure during pregnancy [Unknown]

NARRATIVE: CASE EVENT DATE: 201909
